FAERS Safety Report 22968296 (Version 2)
Quarter: 2023Q4

REPORT INFORMATION
  Report Type: Spontaneous
  Country: US (occurrence: US)
  Receive Date: 20230921
  Receipt Date: 20231113
  Transmission Date: 20240110
  Serious: Yes (Life-Threatening, Hospitalization)
  Sender: FDA-Public Use
  Company Number: US-AMERICAN REGENT INC-2023002245

PATIENT
  Age: 70 Year
  Sex: Male
  Weight: 100 kg

DRUGS (5)
  1. VENOFER [Suspect]
     Active Substance: IRON SUCROSE
     Indication: Product used for unknown indication
     Dosage: 50 MILLIGRAM, SLOWLY
     Dates: start: 20230908, end: 20230908
  2. MIRCERA [Suspect]
     Active Substance: METHOXY POLYETHYLENE GLYCOL-EPOETIN BETA
     Indication: Anaemia
     Dosage: 60 MCG: 30 MCG FIRST DOSE GIVEN WITH 1 MINUTE WAIT BETWEEN SECOND DOSE (60 MCG, 1 IN 2 WK)
     Route: 042
     Dates: start: 20230908, end: 20230908
  3. LYRICA [Concomitant]
     Active Substance: PREGABALIN
     Indication: Product used for unknown indication
     Dosage: 25 MILLIGRAM
     Route: 048
  4. NORVASC [Concomitant]
     Active Substance: AMLODIPINE BESYLATE
     Indication: Product used for unknown indication
     Dosage: 5 MILLIGRAM
     Route: 048
  5. ELIQUIS [Concomitant]
     Active Substance: APIXABAN
     Indication: Product used for unknown indication
     Dosage: 5 MILLIGRAM
     Route: 048

REACTIONS (9)
  - Agonal respiration [Recovered/Resolved]
  - Pulse absent [Recovered/Resolved]
  - Pain [Recovered/Resolved]
  - Respiratory distress [Recovered/Resolved]
  - Flushing [Recovered/Resolved]
  - Seizure [Recovered/Resolved]
  - Cough [Recovered/Resolved]
  - Loss of consciousness [Recovered/Resolved]
  - Hypotension [Recovered/Resolved]

NARRATIVE: CASE EVENT DATE: 20230908
